FAERS Safety Report 10821095 (Version 1)
Quarter: 2015Q1

REPORT INFORMATION
  Report Type: Spontaneous
  Country: GB (occurrence: None)
  Receive Date: 20150213
  Receipt Date: 20150213
  Transmission Date: 20150721
  Serious: Yes (Disabling, Other)
  Sender: FDA-Public Use
  Company Number: GB-H14001-15-00232

PATIENT
  Sex: Female

DRUGS (4)
  1. PARACETAMOL [Concomitant]
     Active Substance: ACETAMINOPHEN
  2. LIOTHYRONINE [Concomitant]
     Active Substance: LIOTHYRONINE
  3. CIPROFLOXACIN (CIPROFLOXACIN) (UNKNOWN) (CIPROFLOXACIN) [Suspect]
     Active Substance: CIPROFLOXACIN
     Indication: PRODUCT USED FOR UNKNOWN INDICATION
  4. PREDNISOLONE (PREDNISOLONE) (UNKNOWN) (PREDNISOLONE) [Concomitant]

REACTIONS (8)
  - Palpitations [None]
  - Paraesthesia [None]
  - Pain in extremity [None]
  - Blood test abnormal [None]
  - Pain [None]
  - Vitamin B12 decreased [None]
  - Hyperhidrosis [None]
  - Visual impairment [None]

NARRATIVE: CASE EVENT DATE: 20140801
